FAERS Safety Report 4505630-4 (Version None)
Quarter: 2004Q4

REPORT INFORMATION
  Report Type: 
  Country: None (occurrence: None)
  Receive Date: 20041119
  Receipt Date: 20020319
  Transmission Date: 20050328
  Serious: Yes (Hospitalization, Other)
  Sender: FDA-Public Use
  Company Number: US-MERCK-0203USA02024

PATIENT
  Age: 71 Year
  Sex: Male
  Weight: 91 kg

DRUGS (16)
  1. VIOXX [Suspect]
     Indication: ARTHRITIS
     Route: 048
     Dates: end: 20010323
  2. AVAPRO [Concomitant]
     Route: 065
     Dates: start: 19981002, end: 20030509
  3. NIACIN [Concomitant]
     Route: 065
     Dates: start: 19981002, end: 20031005
  4. TYLENOL [Concomitant]
     Route: 065
     Dates: start: 19981002
  5. CELEXA [Concomitant]
     Route: 065
     Dates: start: 19980427, end: 20030509
  6. FLEXERIL [Concomitant]
     Route: 048
  7. VICODIN [Concomitant]
     Route: 065
  8. ATIVAN [Concomitant]
     Route: 065
     Dates: start: 19981002, end: 20020606
  9. PLAVIX [Concomitant]
     Indication: MYOCARDIAL INFARCTION
     Route: 065
     Dates: start: 19981002, end: 19991002
  10. ATENOLOL [Concomitant]
     Indication: HYPERTENSION
     Route: 048
     Dates: start: 19990114
  11. ASPIRIN [Concomitant]
     Route: 048
     Dates: start: 19990114
  12. PREVACID [Concomitant]
     Route: 048
     Dates: start: 19990114
  13. NASACORT [Concomitant]
     Route: 065
     Dates: start: 19990128
  14. ZANTAC [Concomitant]
     Route: 065
     Dates: start: 19990225
  15. TUMS [Concomitant]
     Route: 065
     Dates: start: 19990909
  16. TITRALAC ANTACID [Concomitant]
     Route: 065
     Dates: start: 20010830

REACTIONS (16)
  - ANGIOPATHY [None]
  - CAROTID ARTERY STENOSIS [None]
  - CIRCULATORY COLLAPSE [None]
  - CORONARY ARTERY DISEASE [None]
  - DEAFNESS [None]
  - DYSPNOEA EXERTIONAL [None]
  - EMOTIONAL DISTRESS [None]
  - FEMUR FRACTURE [None]
  - GASTROINTESTINAL DISORDER [None]
  - MIGRAINE [None]
  - MYOCARDIAL INFARCTION [None]
  - MYOCARDIAL ISCHAEMIA [None]
  - NASAL POLYPS [None]
  - NASAL TURBINATE HYPERTROPHY [None]
  - STRESS SYMPTOMS [None]
  - VESTIBULAR NEURONITIS [None]
